FAERS Safety Report 9319731 (Version 1)
Quarter: 2013Q2

REPORT INFORMATION
  Report Type: Spontaneous
  Country: US (occurrence: US)
  Receive Date: 20130530
  Receipt Date: 20130530
  Transmission Date: 20140414
  Serious: No
  Sender: FDA-Public Use
  Company Number: US-PFIZER INC-2013161065

PATIENT
  Age: 36 Year
  Sex: Male
  Weight: 83.9 kg

DRUGS (4)
  1. FLUCONAZOLE [Suspect]
     Indication: MENINGITIS CRYPTOCOCCAL
     Dosage: 200 MG, 1X/DAY
     Route: 048
     Dates: start: 20110812
  2. TRUVADA [Concomitant]
     Indication: HIV INFECTION
     Dosage: UNK
  3. NORVIR [Concomitant]
     Indication: HIV INFECTION
     Dosage: UNK
  4. VALTREX [Concomitant]
     Indication: HERPES VIRUS INFECTION
     Dosage: UNK

REACTIONS (5)
  - Tinea pedis [Unknown]
  - Skin discolouration [Unknown]
  - Nail disorder [Unknown]
  - Therapeutic response unexpected [Unknown]
  - Wrong technique in drug usage process [Unknown]
